FAERS Safety Report 7767229-6 (Version None)
Quarter: 2011Q3

REPORT INFORMATION
  Report Type: 
  Country: None (occurrence: None)
  Receive Date: 20110922
  Receipt Date: 20110301
  Transmission Date: 20111222
  Serious: No
  Sender: FDA-Public Use
  Company Number: US-ASTRAZENECA-2011SE20959

PATIENT
  Age: 683 Month
  Sex: Female

DRUGS (10)
  1. SERZONE [Concomitant]
     Dosage: 100 MG HALF BID TO START AND TITRATING UPT 150 MG BID
     Dates: start: 19960801
  2. DIAZEPAM [Concomitant]
     Indication: SLEEP DISORDER
     Dosage: 5-10 MG QHS
     Dates: start: 19960101
  3. SEROQUEL [Suspect]
     Route: 048
     Dates: start: 20050922
  4. OXYCONTIN [Concomitant]
     Dosage: 20 MG TAKE 2 OR 3 TABLETS 8 HOURLY
     Dates: start: 20050820
  5. ZYPREXA [Concomitant]
     Dosage: 10 MG TAKE 2 TABLETS AT BEDTIME AND TAKE 1 TABLET DAILY AS NEEDED
     Dates: start: 20050916
  6. PAXIL [Concomitant]
     Dates: start: 19910101, end: 19960101
  7. LEXAPRO [Concomitant]
     Indication: SLEEP DISORDER
     Dosage: PRN
     Dates: start: 19960101
  8. APO-DIVALPROEX [Concomitant]
     Dates: start: 20050916
  9. APO-AMITRIPTYLINE [Concomitant]
     Dosage: 25-50 MG
     Dates: start: 20050916
  10. VALPROIC ACID [Concomitant]
     Dates: start: 19960101

REACTIONS (5)
  - ASTHMA [None]
  - WOUND [None]
  - DERMATITIS CONTACT [None]
  - OBESITY [None]
  - GLAUCOMA [None]
